FAERS Safety Report 8160267-3 (Version None)
Quarter: 2012Q1

REPORT INFORMATION
  Report Type: 
  Country: None (occurrence: None)
  Receive Date: 20120223
  Receipt Date: 20120223
  Transmission Date: 20120608
  Serious: Yes (Other)
  Sender: FDA-Public Use
  Company Number: None

PATIENT
  Age: 78 Year
  Sex: Female
  Weight: 85.7 kg

DRUGS (1)
  1. PREGABALIN [Suspect]
     Indication: PROCEDURAL PAIN
     Dosage: 100.0 MG
     Route: 048
     Dates: start: 20120127, end: 20120128

REACTIONS (2)
  - MUSCLE TWITCHING [None]
  - DYSKINESIA [None]
